FAERS Safety Report 18673950 (Version 2)
Quarter: 2021Q1

REPORT INFORMATION
  Report Type: Spontaneous
  Country: CZ (occurrence: CZ)
  Receive Date: 20201229
  Receipt Date: 20210111
  Transmission Date: 20210419
  Serious: No
  Sender: FDA-Public Use
  Company Number: CZ-BAUSCH-BL-2020-038844

PATIENT
  Age: 41 Year
  Sex: Male

DRUGS (7)
  1. CYCLOPHOSPHAMIDE. [Suspect]
     Active Substance: CYCLOPHOSPHAMIDE
     Indication: CHRONIC LYMPHOCYTIC LEUKAEMIA
     Dosage: RCD REGIMEN
     Route: 065
     Dates: start: 201702, end: 201702
  2. AZATHIOPRINE. [Concomitant]
     Active Substance: AZATHIOPRINE
     Indication: MULTIPLE SCLEROSIS
     Dates: start: 2010
  3. DEXAMETHASONE. [Suspect]
     Active Substance: DEXAMETHASONE
     Dosage: RCD REGIMEN; BY THE JUN/2017 A TOTAL OF FIVE CYCLES OF RCD WERE ADMINISTERED
     Route: 065
     Dates: start: 201702
  4. FLUDARABINE [Concomitant]
     Active Substance: FLUDARABINE PHOSPHATE
     Indication: MALIGNANT MELANOMA
  5. CYCLOPHOSPHAMIDE. [Suspect]
     Active Substance: CYCLOPHOSPHAMIDE
     Dosage: DOSE REDUCTION; BY THE JUN/2017 A TOTAL OF FIVE CYCLES OF RCD WERE ADMINISTERED
     Route: 065
     Dates: start: 201702
  6. DEXAMETHASONE. [Suspect]
     Active Substance: DEXAMETHASONE
     Indication: CHRONIC LYMPHOCYTIC LEUKAEMIA
     Dosage: PRE?PHASE
     Route: 065
     Dates: start: 2017, end: 2017
  7. RITUXIMAB. [Suspect]
     Active Substance: RITUXIMAB
     Indication: CHRONIC LYMPHOCYTIC LEUKAEMIA
     Dosage: RCD REGIMEN; RCD REGIMEN; BY THE JUN/2017 A TOTAL OF FIVE CYCLES OF RCD WERE ADMINISTERED
     Route: 065
     Dates: start: 201702

REACTIONS (1)
  - Therapy partial responder [Unknown]
